FAERS Safety Report 17157570 (Version 1)
Quarter: 2019Q4

REPORT INFORMATION
  Report Type: Spontaneous
  Country: US (occurrence: US)
  Receive Date: 20191213
  Receipt Date: 20191213
  Transmission Date: 20200122
  Serious: No
  Sender: FDA-Public Use
  Company Number: None

PATIENT
  Age: 8 Year
  Sex: Female
  Weight: 27.45 kg

DRUGS (1)
  1. TRETINOIN CREAM USP [Suspect]
     Active Substance: TRETINOIN
     Indication: ERYTHEMA
     Route: 061
     Dates: start: 20191207, end: 20191211

REACTIONS (3)
  - Swelling face [None]
  - Pruritus [None]
  - Erythema [None]

NARRATIVE: CASE EVENT DATE: 20191213
